FAERS Safety Report 10164202 (Version 1)
Quarter: 2014Q2

REPORT INFORMATION
  Report Type: Spontaneous
  Country: US (occurrence: US)
  Receive Date: 20140510
  Receipt Date: 20140510
  Transmission Date: 20141212
  Serious: No
  Sender: FDA-Public Use
  Company Number: US-BRISTOL-MYERS SQUIBB COMPANY-20020392

PATIENT
  Age: 82 Year
  Sex: Female
  Weight: 81.63 kg

DRUGS (9)
  1. BYDUREON [Suspect]
     Indication: TYPE 2 DIABETES MELLITUS
     Route: 058
  2. OMEPRAZOLE [Concomitant]
  3. LOSARTAN [Concomitant]
  4. GLIPIZIDE [Concomitant]
  5. FENOFIBRATE [Concomitant]
  6. VITAMINS [Concomitant]
     Dosage: EVERY OTHER DAY
  7. PROBIOTICA [Concomitant]
  8. LUTEIN [Concomitant]
  9. COENZYME-Q10 [Concomitant]

REACTIONS (2)
  - Injection site mass [Unknown]
  - Injection site rash [Unknown]
